FAERS Safety Report 6470603-1 (Version None)
Quarter: 2009Q4

REPORT INFORMATION
  Report Type: 
  Country: None (occurrence: None)
  Receive Date: 20091203
  Receipt Date: 20090205
  Transmission Date: 20100525
  Serious: No
  Sender: FDA-Public Use
  Company Number: US-ABBOTT-09P-163-0502334-00

PATIENT
  Sex: Female
  Weight: 53.572 kg

DRUGS (2)
  1. MERIDIA [Suspect]
     Indication: PREMENSTRUAL SYNDROME
     Dates: start: 20081101, end: 20090205
  2. MERIDIA [Suspect]
     Indication: EATING DISORDER

REACTIONS (1)
  - ALOPECIA [None]
